FAERS Safety Report 25780551 (Version 3)
Quarter: 2025Q4

REPORT INFORMATION
  Report Type: Spontaneous
  Country: US (occurrence: US)
  Receive Date: 20250909
  Receipt Date: 20251018
  Transmission Date: 20260118
  Serious: Yes (Hospitalization)
  Sender: SANOFI AVENTIS
  Company Number: US-SA-2025SA268225

PATIENT
  Age: 4 Year
  Sex: Male

DRUGS (3)
  1. REZUROCK [Suspect]
     Active Substance: BELUMOSUDIL
     Indication: Acute graft versus host disease
     Dosage: 100 MG, QD
     Route: 048
     Dates: start: 20250814
  2. REZUROCK [Suspect]
     Active Substance: BELUMOSUDIL
     Indication: Stem cell transplant
     Dosage: 200 MG, QD
     Route: 048
     Dates: start: 20250815
  3. REZUROCK [Suspect]
     Active Substance: BELUMOSUDIL
     Indication: Bronchiolitis obliterans syndrome

REACTIONS (2)
  - Hospitalisation [Unknown]
  - Off label use [Unknown]

NARRATIVE: CASE EVENT DATE: 20250814
